FAERS Safety Report 12924133 (Version 1)
Quarter: 2016Q4

REPORT INFORMATION
  Report Type: Spontaneous
  Country: FR (occurrence: FR)
  Receive Date: 20161108
  Receipt Date: 20161108
  Transmission Date: 20170207
  Serious: Yes (Hospitalization)
  Sender: FDA-Public Use
  Company Number: FR-JNJFOC-20161024306

PATIENT
  Age: 67 Year
  Sex: Male
  Weight: 53 kg

DRUGS (10)
  1. ACUPAN [Concomitant]
     Active Substance: NEFOPAM HYDROCHLORIDE
     Indication: PAIN
     Route: 050
     Dates: start: 201512
  2. MECIR [Concomitant]
     Active Substance: TAMSULOSIN HYDROCHLORIDE
     Route: 048
     Dates: start: 201512
  3. VASELINE PURE [Concomitant]
     Active Substance: PETROLATUM
     Route: 003
     Dates: start: 201605
  4. JOSIR [Concomitant]
     Active Substance: TAMSULOSIN
  5. ATARAX [Concomitant]
     Active Substance: HYDROXYZINE\HYDROXYZINE HYDROCHLORIDE
     Indication: ANXIETY
     Route: 048
     Dates: start: 201512
  6. LYSANXIA [Concomitant]
     Active Substance: PRAZEPAM
     Indication: ANXIETY
  7. IBRUTINIB [Suspect]
     Active Substance: IBRUTINIB
     Indication: CHRONIC LYMPHOCYTIC LEUKAEMIA
     Route: 048
     Dates: start: 20151211
  8. DIFFU K [Concomitant]
     Active Substance: POTASSIUM CHLORIDE
     Route: 048
     Dates: start: 201512
  9. GLYCEROL\PARAFFIN [Concomitant]
     Active Substance: GLYCERIN\PARAFFIN
     Route: 003
     Dates: start: 201605
  10. CICLOPIROX. [Concomitant]
     Active Substance: CICLOPIROX
     Route: 003
     Dates: start: 201605

REACTIONS (2)
  - Condition aggravated [Not Recovered/Not Resolved]
  - Scleroderma [Not Recovered/Not Resolved]

NARRATIVE: CASE EVENT DATE: 201604
